FAERS Safety Report 4415473-8 (Version None)
Quarter: 2004Q3

REPORT INFORMATION
  Report Type: 
  Country: None (occurrence: None)
  Receive Date: 20040730
  Receipt Date: 20040720
  Transmission Date: 20050211
  Serious: Yes (Other)
  Sender: FDA-Public Use
  Company Number: 2004213831GB

PATIENT
  Age: 11 Year
  Sex: Female
  Weight: 45.2 kg

DRUGS (3)
  1. GENOTROPIN [Suspect]
     Indication: TURNER'S SYNDROME
     Dosage: SEE IMAGE SUBCUTANEOUS
     Route: 058
     Dates: start: 19980415, end: 20040301
  2. GENOTROPIN [Suspect]
     Indication: TURNER'S SYNDROME
     Dosage: SEE IMAGE SUBCUTANEOUS
     Route: 058
     Dates: start: 20040301, end: 20040518
  3. GENOTROPIN [Suspect]
     Indication: TURNER'S SYNDROME
     Dosage: SEE IMAGE SUBCUTANEOUS
     Route: 058
     Dates: start: 20040702

REACTIONS (6)
  - EYE SWELLING [None]
  - FEELING ABNORMAL [None]
  - HEADACHE [None]
  - OPHTHALMOLOGICAL EXAMINATION ABNORMAL [None]
  - VIRAL INFECTION [None]
  - VOMITING [None]
